FAERS Safety Report 15354611 (Version 2)
Quarter: 2019Q1

REPORT INFORMATION
  Report Type: Spontaneous
  Country: PL (occurrence: PL)
  Receive Date: 20180906
  Receipt Date: 20190322
  Transmission Date: 20190417
  Serious: Yes (Other)
  Sender: FDA-Public Use
  Company Number: PL-APOTEX-2018AP020026

PATIENT
  Age: 12 Year
  Sex: Male

DRUGS (7)
  1. MYCOPHENOLATE [Interacting]
     Active Substance: MYCOPHENOLIC ACID
     Dosage: 1000 MG, BID
     Route: 065
  2. CYCLOSPORINE. [Suspect]
     Active Substance: CYCLOSPORINE
     Indication: NEPHROTIC SYNDROME
     Dosage: UNK
     Route: 065
     Dates: start: 2012, end: 2013
  3. PREDNISONE. [Suspect]
     Active Substance: PREDNISONE
     Indication: NEPHROTIC SYNDROME
     Dosage: UNK
     Route: 065
     Dates: start: 201401
  4. PREDNISONE. [Suspect]
     Active Substance: PREDNISONE
     Dosage: 5 MG, PER DAY
     Route: 065
  5. CYCLOSPORINE. [Suspect]
     Active Substance: CYCLOSPORINE
     Dosage: UNK
     Route: 065
     Dates: start: 2014
  6. MYCOPHENOLATE [Interacting]
     Active Substance: MYCOPHENOLIC ACID
     Indication: NEPHROTIC SYNDROME
     Dosage: UNK UNK, UNKNOWN
     Route: 065
     Dates: start: 2012, end: 2013
  7. MYCOPHENOLATE [Interacting]
     Active Substance: MYCOPHENOLIC ACID
     Dosage: UNK
     Route: 065
     Dates: start: 2014

REACTIONS (2)
  - Granulocytes maturation arrest [Recovering/Resolving]
  - Nephropathy toxic [Unknown]
